FAERS Safety Report 4570349-0 (Version None)
Quarter: 2005Q1

REPORT INFORMATION
  Report Type: 
  Country: None (occurrence: None)
  Receive Date: 20050204
  Receipt Date: 20050126
  Transmission Date: 20050727
  Serious: Yes (Hospitalization)
  Sender: FDA-Public Use
  Company Number: FR-ROCHE-393647

PATIENT
  Sex: Female
  Weight: 3.4 kg

DRUGS (4)
  1. CLONAZEPAM [Suspect]
     Indication: DRUG USE FOR UNKNOWN INDICATION
     Dates: end: 20040611
  2. KEPPRA [Concomitant]
     Dates: start: 20040227, end: 20040611
  3. DEPAKENE [Concomitant]
     Dates: end: 20040611
  4. CELESTENE [Concomitant]
     Dates: start: 20040413

REACTIONS (10)
  - APNOEA [None]
  - BRAIN SCAN ABNORMAL [None]
  - CAESAREAN SECTION [None]
  - CEREBRAL DISORDER [None]
  - DRUG EXPOSURE DURING PREGNANCY [None]
  - DYSKINESIA [None]
  - ELECTROENCEPHALOGRAM ABNORMAL [None]
  - HYPOTONIA NEONATAL [None]
  - OXYGEN SATURATION DECREASED [None]
  - PREGNANCY [None]
